FAERS Safety Report 11107291 (Version 3)
Quarter: 2015Q2

REPORT INFORMATION
  Report Type: Spontaneous
  Country: HU (occurrence: HU)
  Receive Date: 20150512
  Receipt Date: 20150610
  Transmission Date: 20150821
  Serious: Yes (Hospitalization)
  Sender: FDA-Public Use
  Company Number: HU-GLAXOSMITHKLINE INC.-HU2015GSK062883

PATIENT
  Age: 3 Month
  Sex: Male

DRUGS (1)
  1. VENTOLINE BABY HALER [Suspect]
     Active Substance: ALBUTEROL SULFATE
     Indication: BRONCHITIS

REACTIONS (2)
  - Product quality issue [Unknown]
  - Drug administration error [Unknown]
